FAERS Safety Report 24309019 (Version 2)
Quarter: 2025Q2

REPORT INFORMATION
  Report Type: Report from Study
  Country: US (occurrence: US)
  Receive Date: 20240911
  Receipt Date: 20250528
  Transmission Date: 20250717
  Serious: Yes (Hospitalization, Other)
  Sender: ABBVIE
  Company Number: US-ABBVIE-5914514

PATIENT
  Age: 72 Year
  Sex: Male

DRUGS (1)
  1. HUMIRA [Suspect]
     Active Substance: ADALIMUMAB
     Indication: Psoriasis
     Route: 058
     Dates: start: 202210

REACTIONS (5)
  - Prosthetic cardiac valve thrombosis [Not Recovered/Not Resolved]
  - Fatigue [Recovering/Resolving]
  - Heart valve replacement [Recovering/Resolving]
  - Dyspnoea [Recovering/Resolving]
  - Heart valve incompetence [Not Recovered/Not Resolved]

NARRATIVE: CASE EVENT DATE: 20240101
